FAERS Safety Report 26095044 (Version 1)
Quarter: 2025Q4

REPORT INFORMATION
  Report Type: Spontaneous
  Country: US (occurrence: US)
  Receive Date: 20251127
  Receipt Date: 20251127
  Transmission Date: 20260119
  Serious: Yes (Hospitalization)
  Sender: ROCHE
  Company Number: US-ROCHE-10000443546

PATIENT
  Sex: Female

DRUGS (2)
  1. XOLAIR [Suspect]
     Active Substance: OMALIZUMAB
     Indication: Idiopathic urticaria
     Route: 058
     Dates: start: 201911
  2. XOLAIR [Suspect]
     Active Substance: OMALIZUMAB
     Indication: Pruritus

REACTIONS (2)
  - Product dose omission issue [Unknown]
  - Bedridden [Unknown]
